FAERS Safety Report 14381939 (Version 4)
Quarter: 2025Q3

REPORT INFORMATION
  Report Type: Spontaneous
  Country: JP (occurrence: JP)
  Receive Date: 20180112
  Receipt Date: 20250922
  Transmission Date: 20251020
  Serious: Yes (Other)
  Sender: SANOFI AVENTIS
  Company Number: JP-SA-2017SA269619

PATIENT
  Age: 75 Year
  Sex: Male

DRUGS (6)
  1. OXALIPLATIN [Suspect]
     Active Substance: OXALIPLATIN
     Indication: Rectal cancer stage III
     Route: 041
     Dates: start: 201304, end: 201304
  2. OXALIPLATIN [Suspect]
     Active Substance: OXALIPLATIN
     Route: 041
     Dates: start: 2013
  3. CAPECITABINE [Suspect]
     Active Substance: CAPECITABINE
     Indication: Rectal cancer stage III
     Route: 041
     Dates: start: 201304, end: 201304
  4. CAPECITABINE [Suspect]
     Active Substance: CAPECITABINE
     Route: 041
     Dates: start: 2013
  5. CAPECITABINE [Suspect]
     Active Substance: CAPECITABINE
     Route: 041
     Dates: start: 2013
  6. CAPECITABINE [Suspect]
     Active Substance: CAPECITABINE
     Route: 041
     Dates: start: 2013

REACTIONS (9)
  - Alcoholic liver disease [Recovered/Resolved]
  - Hepatotoxicity [Recovered/Resolved]
  - Malaise [Recovered/Resolved]
  - Decreased appetite [Recovered/Resolved]
  - Ascites [Recovered/Resolved]
  - Thrombocytopenia [Recovered/Resolved]
  - Portal hypertension [Recovered/Resolved]
  - Venoocclusive liver disease [Recovered/Resolved]
  - Splenomegaly [Recovered/Resolved]

NARRATIVE: CASE EVENT DATE: 20130101
